FAERS Safety Report 6137754-2 (Version None)
Quarter: 2009Q1

REPORT INFORMATION
  Report Type: 
  Country: None (occurrence: None)
  Receive Date: 20090327
  Receipt Date: 20090313
  Transmission Date: 20090719
  Serious: No
  Sender: FDA-Public Use
  Company Number: 2009001948

PATIENT
  Sex: Male

DRUGS (1)
  1. FENTORA [Suspect]
     Dosage: (400 MCG), BU
     Route: 002

REACTIONS (1)
  - INTERCEPTED DRUG DISPENSING ERROR [None]
